FAERS Safety Report 9162313 (Version 1)
Quarter: 2013Q1

REPORT INFORMATION
  Report Type: Spontaneous
  Country: US (occurrence: None)
  Receive Date: 20130225
  Receipt Date: 20130225
  Transmission Date: 20140127
  Serious: Yes (Hospitalization)
  Sender: FDA-Public Use
  Company Number: AUR-APL-2013-01519

PATIENT
  Age: 61 Year
  Sex: Male

DRUGS (2)
  1. QUETIAPINE (QUETIAPINE) (QUETIAPINE) [Suspect]
     Indication: PRODUCT USED FOR UNKNOWN INDICATION
  2. ZOLPIDEM (ZOLPIDEM) [Suspect]

REACTIONS (9)
  - Flushing [None]
  - Brugada syndrome [None]
  - Suicide attempt [None]
  - Overdose [None]
  - Confusional state [None]
  - Agitation [None]
  - Hyperhidrosis [None]
  - Miosis [None]
  - Tremor [None]
